FAERS Safety Report 18358641 (Version 1)
Quarter: 2020Q4

REPORT INFORMATION
  Report Type: Spontaneous
  Country: FR (occurrence: FR)
  Receive Date: 20201008
  Receipt Date: 20201008
  Transmission Date: 20210114
  Serious: Yes (Life-Threatening)
  Sender: FDA-Public Use
  Company Number: FR-SUN PHARMACEUTICAL INDUSTRIES LTD-2020RR-263645

PATIENT
  Age: 60 Year
  Sex: Female

DRUGS (3)
  1. XANAX [Concomitant]
     Active Substance: ALPRAZOLAM
     Indication: POISONING
     Dosage: UNK
     Route: 048
     Dates: start: 20200618, end: 20200618
  2. LORMETAZEPAM ARROW [Concomitant]
     Active Substance: LORMETAZEPAM
     Indication: POISONING
     Dosage: UNK
     Route: 048
     Dates: start: 20200618, end: 20200618
  3. PARACETAMOL [Suspect]
     Active Substance: ACETAMINOPHEN
     Indication: POISONING
     Dosage: 28 GRAM, DAILY
     Route: 048
     Dates: start: 20200618, end: 20200618

REACTIONS (3)
  - Acute kidney injury [Recovered/Resolved]
  - Hepatocellular injury [Recovered/Resolved]
  - Encephalopathy [Recovered/Resolved]

NARRATIVE: CASE EVENT DATE: 20200619
